FAERS Safety Report 20633703 (Version 5)
Quarter: 2022Q2

REPORT INFORMATION
  Report Type: Report from Study
  Country: CA (occurrence: CA)
  Receive Date: 20220324
  Receipt Date: 20220614
  Transmission Date: 20220720
  Serious: Yes (Other)
  Sender: FDA-Public Use
  Company Number: CA-OTSUKA-2022_016522

PATIENT
  Sex: Female

DRUGS (1)
  1. CEDAZURIDINE\DECITABINE [Suspect]
     Active Substance: CEDAZURIDINE\DECITABINE
     Indication: Chronic myelomonocytic leukaemia
     Dosage: UNK
     Route: 065
     Dates: start: 20211202

REACTIONS (7)
  - Transfusion [Unknown]
  - Blood potassium decreased [Unknown]
  - Platelet count decreased [Unknown]
  - Illness [Unknown]
  - Alopecia [Unknown]
  - Chills [Unknown]
  - Feeling cold [Unknown]
